FAERS Safety Report 5553744-2 (Version None)
Quarter: 2007Q4

REPORT INFORMATION
  Report Type: 
  Country: None (occurrence: None)
  Receive Date: 20071213
  Receipt Date: 20071204
  Transmission Date: 20080405
  Serious: Yes (Hospitalization)
  Sender: FDA-Public Use
  Company Number: JP-ELI_LILLY_AND_COMPANY-JP200710004109

PATIENT
  Sex: Male

DRUGS (10)
  1. HUMALOG [Suspect]
     Dosage: 10 IU, EACH MORNING
     Route: 058
     Dates: start: 20070920, end: 20071007
  2. HUMALOG [Suspect]
     Dosage: 12 IU, DAILY (1/D)
     Route: 058
     Dates: start: 20070920, end: 20071007
  3. HUMALOG [Suspect]
     Dosage: 8 IU, EACH EVENING
     Route: 058
     Dates: start: 20070920, end: 20071007
  4. ARTIST [Concomitant]
     Indication: PROPHYLAXIS
     Dosage: 10 MG, DAILY (1/D)
     Route: 048
  5. LASIX [Concomitant]
     Indication: PROPHYLAXIS
     Dosage: 20 MG, DAILY (1/D)
     Route: 048
  6. AMLODIN [Concomitant]
     Indication: PROPHYLAXIS
     Dosage: 5 MG, DAILY (1/D)
     Route: 048
  7. ITOROL [Concomitant]
     Indication: PROPHYLAXIS
     Dosage: 40 MG, DAILY (1/D)
     Route: 048
  8. SIGMART [Concomitant]
     Indication: PROPHYLAXIS
     Dosage: 15 MG, DAILY (1/D)
     Route: 048
  9. PANALDINE [Concomitant]
     Indication: PROPHYLAXIS
     Dosage: 200 MG, DAILY (1/D)
     Route: 048
  10. SELBEX [Concomitant]
     Indication: PROPHYLAXIS
     Dosage: 150 MG, DAILY (1/D)
     Route: 048

REACTIONS (2)
  - ANTI-INSULIN ANTIBODY POSITIVE [None]
  - HYPOGLYCAEMIA [None]
